FAERS Safety Report 20062121 (Version 2)
Quarter: 2021Q4

REPORT INFORMATION
  Report Type: Spontaneous
  Country: US (occurrence: US)
  Receive Date: 20211112
  Receipt Date: 20211202
  Transmission Date: 20220303
  Serious: Yes (Hospitalization, Other)
  Sender: FDA-Public Use
  Company Number: US-PFIZER INC-202101452761

PATIENT
  Age: 7 Month
  Sex: Male

DRUGS (7)
  1. CLEOCIN [Suspect]
     Active Substance: CLINDAMYCIN PHOSPHATE
     Dosage: UNK
  2. LINCOCIN [Suspect]
     Active Substance: LINCOMYCIN
     Dosage: UNK
  3. LOMOTIL [Suspect]
     Active Substance: ATROPINE SULFATE\DIPHENOXYLATE HYDROCHLORIDE
     Dosage: UNK
  4. DECADRON [Suspect]
     Active Substance: DEXAMETHASONE
     Dosage: UNK
  5. DIPHTHERIA AND TETANUS TOXOIDS AND PERTUSSIS VACCINE ADSORBED NOS [Suspect]
     Active Substance: DIPHTHERIA AND TETANUS TOXOIDS AND PERTUSSIS VACCINE
     Dosage: 1ST DOSE SINGLE
     Dates: start: 19720221
  6. DIPHTHERIA AND TETANUS TOXOIDS AND PERTUSSIS VACCINE ADSORBED NOS [Suspect]
     Active Substance: DIPHTHERIA AND TETANUS TOXOIDS AND PERTUSSIS VACCINE
     Dosage: 2ND DOSE SINGLE
     Dates: start: 19720807
  7. CORTICOTROPIN [Suspect]
     Active Substance: CORTICOTROPIN
     Dosage: UNK

REACTIONS (17)
  - Pyloric stenosis [Recovered/Resolved]
  - Eye operation [Unknown]
  - Diabetes mellitus [Unknown]
  - Brain injury [Unknown]
  - Anaphylactic reaction [Unknown]
  - Intellectual disability [Unknown]
  - Pyrexia [Unknown]
  - Upper respiratory tract infection [Unknown]
  - Diarrhoea [Unknown]
  - Rash [Unknown]
  - Drug hypersensitivity [Unknown]
  - Product use issue [Unknown]
  - Off label use [Unknown]
  - Rhinorrhoea [Unknown]
  - Cough [Unknown]
  - Vomiting [Unknown]
  - Acidosis [Unknown]

NARRATIVE: CASE EVENT DATE: 19720221
